FAERS Safety Report 21338400 (Version 1)
Quarter: 2022Q3

REPORT INFORMATION
  Report Type: Spontaneous
  Country: US (occurrence: US)
  Receive Date: 20220915
  Receipt Date: 20220915
  Transmission Date: 20221026
  Serious: Yes (Death, Hospitalization, Other)
  Sender: FDA-Public Use
  Company Number: US-AMGEN-USASP2022157062

PATIENT

DRUGS (2)
  1. TRASTUZUMAB [Suspect]
     Active Substance: TRASTUZUMAB
     Indication: HER2 positive breast cancer
     Dosage: 25 MILLIGRAM/SQ. METER (ON DAYS 1/8 OF A 21-DAY CYCLE WITH 4 PLANNED CYCLES)
     Route: 065
  2. VINORELBINE [Suspect]
     Active Substance: VINORELBINE TARTRATE
     Indication: HER2 positive breast cancer
     Dosage: 25 MILLIGRAM/SQ. METER (ON DAYS 1/8 OF A 21-DAY CYCLE WITH 4 PLANNED CYCLES)
     Route: 065

REACTIONS (5)
  - Death [Fatal]
  - Chills [Unknown]
  - Pyrexia [Unknown]
  - Breast cancer recurrent [Unknown]
  - Diarrhoea [Unknown]
